FAERS Safety Report 8969513 (Version 1)
Quarter: 2012Q4

REPORT INFORMATION
  Report Type: 
  Country: US (occurrence: US)
  Receive Date: 20121218
  Receipt Date: 20121218
  Transmission Date: 20130627
  Serious: No
  Sender: FDA-Public Use
  Company Number: US-BRISTOL-MYERS SQUIBB COMPANY-16265357

PATIENT
  Age: 49 Year
  Sex: Female

DRUGS (5)
  1. ABILIFY [Suspect]
     Dosage: dose reduced to 10mg and 5 mg
  2. XANAX [Concomitant]
  3. EFFEXOR [Concomitant]
  4. ADDERALL XR [Concomitant]
  5. NYSTATIN [Concomitant]
     Dosage: cream

REACTIONS (4)
  - Hepatic enzyme increased [Unknown]
  - Restless legs syndrome [Recovered/Resolved]
  - Urine odour abnormal [Unknown]
  - Candidiasis [Recovered/Resolved]
